FAERS Safety Report 6804988-0 (Version None)
Quarter: 2010Q2

REPORT INFORMATION
  Report Type: 
  Country: None (occurrence: None)
  Receive Date: 20100628
  Receipt Date: 20070730
  Transmission Date: 20101027
  Serious: No
  Sender: FDA-Public Use
  Company Number: US-PFIZER INC-2007063250

PATIENT
  Sex: Male

DRUGS (1)
  1. OXAPROZIN [Suspect]

REACTIONS (1)
  - DRUG SCREEN POSITIVE [None]
